FAERS Safety Report 23890860 (Version 1)
Quarter: 2024Q2

REPORT INFORMATION
  Report Type: Spontaneous
  Country: US (occurrence: None)
  Receive Date: 20240523
  Receipt Date: 20240523
  Transmission Date: 20240715
  Serious: Yes (Hospitalization)
  Sender: FDA-Public Use
  Company Number: None

PATIENT
  Age: 89 Year
  Sex: Male

DRUGS (1)
  1. ISOVUE 370 [Suspect]
     Active Substance: IOPAMIDOL
     Dosage: FREQUENCY : ONCE;?
     Route: 042

REACTIONS (2)
  - Type IV hypersensitivity reaction [None]
  - Contrast media reaction [None]

NARRATIVE: CASE EVENT DATE: 20240522
